FAERS Safety Report 6532379-9 (Version None)
Quarter: 2010Q1

REPORT INFORMATION
  Report Type: 
  Country: None (occurrence: None)
  Receive Date: 20100108
  Receipt Date: 20100106
  Transmission Date: 20100710
  Serious: Yes (Hospitalization)
  Sender: FDA-Public Use
  Company Number: US-WYE-H11297909

PATIENT
  Sex: Male
  Weight: 74.6 kg

DRUGS (3)
  1. BOSUTINIB [Suspect]
     Indication: DRUG LEVEL
     Route: 048
     Dates: start: 20090911, end: 20090911
  2. BOSUTINIB [Suspect]
     Route: 048
     Dates: start: 20090925, end: 20090925
  3. LANSOPRAZOLE [Suspect]
     Indication: DRUG LEVEL
     Route: 048
     Dates: start: 20090924, end: 20090925

REACTIONS (3)
  - DIVERTICULITIS [None]
  - DUODENITIS [None]
  - GASTRITIS [None]
